FAERS Safety Report 7865345-1 (Version None)
Quarter: 2011Q4

REPORT INFORMATION
  Report Type: 
  Country: None (occurrence: None)
  Receive Date: 20111028
  Receipt Date: 20101123
  Transmission Date: 20120403
  Serious: No
  Sender: FDA-Public Use
  Company Number: US-GLAXOSMITHKLINE-A0896769A

PATIENT
  Age: 63 Year
  Sex: Male

DRUGS (2)
  1. ADVAIR DISKUS 100/50 [Suspect]
     Indication: ASTHMA
     Route: 055
  2. UNSPECIFIED [Suspect]
     Indication: ASTHMA
     Dosage: 100MG UNKNOWN
     Route: 055
     Dates: start: 20100917

REACTIONS (6)
  - FATIGUE [None]
  - DRUG ADMINISTRATION ERROR [None]
  - INSOMNIA [None]
  - ANXIETY [None]
  - NAUSEA [None]
  - VOMITING [None]
